FAERS Safety Report 23603335 (Version 6)
Quarter: 2025Q3

REPORT INFORMATION
  Report Type: Report from Study
  Country: US (occurrence: US)
  Receive Date: 20240307
  Receipt Date: 20250905
  Transmission Date: 20251020
  Serious: Yes (Hospitalization, Other)
  Sender: TAKEDA
  Company Number: US-TAKEDA-US201801647

PATIENT
  Age: 71 Year
  Sex: Male

DRUGS (11)
  1. LANADELUMAB [Suspect]
     Active Substance: LANADELUMAB
     Indication: Hereditary angioedema
     Dosage: 300 MILLIGRAM, Q2WEEKS
     Dates: start: 20190109
  2. LANADELUMAB [Suspect]
     Active Substance: LANADELUMAB
     Indication: Immune system disorder
     Dosage: 300 MILLIGRAM, Q4WEEKS
     Dates: start: 201901
  3. LANADELUMAB [Suspect]
     Active Substance: LANADELUMAB
     Dosage: 300 MILLIGRAM, Q2WEEKS
     Dates: start: 20190607
  4. LANADELUMAB [Suspect]
     Active Substance: LANADELUMAB
     Dosage: 300 MILLIGRAM, Q4WEEKS
     Dates: start: 20200101
  5. LANADELUMAB [Suspect]
     Active Substance: LANADELUMAB
     Dosage: 300 MILLIGRAM, Q4WEEKS
     Dates: start: 20200219
  6. LANADELUMAB [Suspect]
     Active Substance: LANADELUMAB
     Dosage: UNK UNK, Q4WEEKS
  7. LANADELUMAB [Suspect]
     Active Substance: LANADELUMAB
     Dosage: 300 MG/2ML, MONTHLY
  8. CINRYZE [Suspect]
     Active Substance: HUMAN C1-ESTERASE INHIBITOR
     Indication: Hereditary angioedema
  9. CINRYZE [Suspect]
     Active Substance: HUMAN C1-ESTERASE INHIBITOR
     Indication: Immune system disorder
  10. CINRYZE [Suspect]
     Active Substance: HUMAN C1-ESTERASE INHIBITOR
  11. RUCONEST [Concomitant]
     Active Substance: CONESTAT ALFA

REACTIONS (11)
  - Nephrolithiasis [Unknown]
  - Livedo reticularis [Unknown]
  - Weight decreased [Unknown]
  - Treatment noncompliance [Unknown]
  - Inappropriate schedule of product administration [Unknown]
  - Off label use [Unknown]
  - Abdominal pain upper [Unknown]
  - Rash [Unknown]
  - Hereditary angioedema [Not Recovered/Not Resolved]
  - Injection site rash [Unknown]
  - Injection site erythema [Unknown]

NARRATIVE: CASE EVENT DATE: 20190101
